FAERS Safety Report 19397488 (Version 1)
Quarter: 2021Q2

REPORT INFORMATION
  Report Type: Spontaneous
  Country: CZ (occurrence: CZ)
  Receive Date: 20210609
  Receipt Date: 20210609
  Transmission Date: 20210717
  Serious: Yes (Life-Threatening, Hospitalization, Other)
  Sender: FDA-Public Use
  Company Number: CZ-BRISTOL-MYERS SQUIBB COMPANY-BMS-2021-055701

PATIENT
  Age: 64 Year
  Sex: Male
  Weight: 82 kg

DRUGS (6)
  1. OPDIVO [Suspect]
     Active Substance: NIVOLUMAB
     Indication: RENAL CELL CARCINOMA
     Dosage: 1ST CYCLE GIVEN ON 05?JUN?2020. FLAT DOSE 240MG FOR 14 DAYS, SINCE 11TH CYCLE MOVED TO FLAT DOSE 480
     Route: 042
     Dates: start: 20200605, end: 20210505
  2. SORBIFER DURULES [ASCORBIC ACID;FERROUS SULFATE] [Concomitant]
     Indication: PRODUCT USED FOR UNKNOWN INDICATION
     Dosage: 1?0?1
     Route: 065
  3. ATORIS [Concomitant]
     Active Substance: ATORVASTATIN CALCIUM
     Indication: PRODUCT USED FOR UNKNOWN INDICATION
     Dosage: 30 MILLIGRAM 1X1
     Route: 065
  4. AGEN [Concomitant]
     Active Substance: AMLODIPINE BESYLATE
     Indication: PRODUCT USED FOR UNKNOWN INDICATION
     Dosage: MILLIGRAM 1X1
     Route: 065
  5. NOVOMIX [Concomitant]
     Active Substance: INSULIN ASPART
     Indication: PRODUCT USED FOR UNKNOWN INDICATION
     Dosage: 25?16?20 UNITS
     Route: 058
  6. MODERNA COVID?19 VACCINE [Suspect]
     Active Substance: CX-024414
     Indication: COVID-19 IMMUNISATION
     Dosage: 1 DOSAGE FORM, 2 TOTAL
     Route: 030
     Dates: start: 20210408, end: 20210506

REACTIONS (5)
  - Haemoptysis [Recovering/Resolving]
  - Rash [Recovered/Resolved]
  - Body temperature increased [Recovered/Resolved]
  - Renal failure [Recovering/Resolving]
  - Fatigue [Recovering/Resolving]

NARRATIVE: CASE EVENT DATE: 202105
